FAERS Safety Report 9737551 (Version 2)
Quarter: 2014Q1

REPORT INFORMATION
  Report Type: Spontaneous
  Country: US (occurrence: US)
  Receive Date: 20131207
  Receipt Date: 20140128
  Transmission Date: 20141002
  Serious: Yes (Hospitalization, Disabling)
  Sender: FDA-Public Use
  Company Number: US-ALKERMES INC.-ALK-2013-002255

PATIENT
  Sex: 0

DRUGS (4)
  1. VIVITROL [Suspect]
     Indication: ALCOHOLISM
     Dosage: 380 MG, UNK
     Route: 030
     Dates: start: 20130913, end: 20131213
  2. VIVITROL [Suspect]
     Dosage: UNK
  3. ANTABUSE [Suspect]
     Indication: ALCOHOLISM
     Dosage: 1000 UNK, UNK
     Route: 048
     Dates: start: 20130905, end: 20131119
  4. ANTABUSE [Suspect]
     Dosage: UNK
     Route: 048
     Dates: start: 2012, end: 2012

REACTIONS (6)
  - Osmotic demyelination syndrome [Recovered/Resolved]
  - Accidental overdose [Recovered/Resolved]
  - Confusional state [Recovered/Resolved]
  - Dysstasia [Recovered/Resolved]
  - Vomiting [Recovered/Resolved]
  - Asthenia [Recovered/Resolved]
